FAERS Safety Report 22062143 (Version 1)
Quarter: 2023Q1

REPORT INFORMATION
  Report Type: Spontaneous
  Country: US (occurrence: US)
  Receive Date: 20230304
  Receipt Date: 20230304
  Transmission Date: 20230417
  Serious: Yes (Other)
  Sender: FDA-Public Use
  Company Number: US-drreddys-LIT/USA/23/0161762

PATIENT
  Age: 51 Year
  Sex: Male

DRUGS (12)
  1. PREGABALIN [Suspect]
     Active Substance: PREGABALIN
     Indication: Paroxysmal sympathetic hyperactivity
  2. PROPOFOL [Suspect]
     Active Substance: PROPOFOL
     Indication: Sedation
  3. PROPOFOL [Suspect]
     Active Substance: PROPOFOL
     Indication: Paroxysmal sympathetic hyperactivity
     Route: 040
  4. HYDROMORPHONE [Suspect]
     Active Substance: HYDROMORPHONE
     Indication: Sedation
  5. HYDROMORPHONE [Suspect]
     Active Substance: HYDROMORPHONE
     Indication: Paroxysmal sympathetic hyperactivity
  6. MIDAZOLAM [Suspect]
     Active Substance: MIDAZOLAM
     Indication: Sedation
  7. DEXMEDETOMIDINE [Suspect]
     Active Substance: DEXMEDETOMIDINE
     Indication: Sedation
  8. DEXMEDETOMIDINE [Suspect]
     Active Substance: DEXMEDETOMIDINE
     Indication: Paroxysmal sympathetic hyperactivity
  9. GUANFACINE [Suspect]
     Active Substance: GUANFACINE
     Indication: Paroxysmal sympathetic hyperactivity
  10. VALPROIC ACID [Suspect]
     Active Substance: VALPROIC ACID
     Indication: Paroxysmal sympathetic hyperactivity
  11. HALOPERIDOL [Suspect]
     Active Substance: HALOPERIDOL
     Indication: Paroxysmal sympathetic hyperactivity
  12. PHENOBARBITAL [Suspect]
     Active Substance: PHENOBARBITAL
     Indication: Paroxysmal sympathetic hyperactivity

REACTIONS (3)
  - Cerebrovascular accident [Unknown]
  - Paroxysmal sympathetic hyperactivity [Unknown]
  - Drug ineffective [Unknown]
